FAERS Safety Report 15500526 (Version 1)
Quarter: 2018Q4

REPORT INFORMATION
  Report Type: Spontaneous
  Country: US (occurrence: US)
  Receive Date: 20181015
  Receipt Date: 20181015
  Transmission Date: 20190205
  Serious: Yes (Life-Threatening, Hospitalization)
  Sender: FDA-Public Use
  Company Number: None

PATIENT
  Age: 85 Year
  Sex: Female

DRUGS (8)
  1. LIDOCAINE PATCH [Concomitant]
     Active Substance: LIDOCAINE
  2. DONEPEZIL 5 MG [Concomitant]
     Active Substance: DONEPEZIL
  3. WARFARIN 2.5 MG [Concomitant]
     Active Substance: WARFARIN
  4. LEVOCETIRIZINE 5 MG [Concomitant]
     Active Substance: LEVOCETIRIZINE
  5. TIZANIDINE. [Suspect]
     Active Substance: TIZANIDINE
     Dosage: ?          OTHER FREQUENCY:Q 8 HOURS PRN;?
     Route: 048
     Dates: start: 20181014, end: 20181014
  6. CARBIDOPA-LEVODOPA 25-100 MG [Concomitant]
  7. LISINOPRIL-HCTZ 10-12.5 MG [Concomitant]
  8. LEVOTHYROXINE 50 MCG [Concomitant]
     Active Substance: LEVOTHYROXINE

REACTIONS (3)
  - Blood pressure decreased [None]
  - Unresponsive to stimuli [None]
  - Respiratory arrest [None]

NARRATIVE: CASE EVENT DATE: 20181014
